FAERS Safety Report 20967314 (Version 2)
Quarter: 2022Q3

REPORT INFORMATION
  Report Type: Spontaneous
  Country: JP (occurrence: JP)
  Receive Date: 20220616
  Receipt Date: 20220926
  Transmission Date: 20221027
  Serious: Yes (Other)
  Sender: FDA-Public Use
  Company Number: JP-Merck Healthcare KGaA-9328276

PATIENT
  Age: 56 Year
  Sex: Male

DRUGS (9)
  1. ERBITUX [Suspect]
     Active Substance: CETUXIMAB
     Indication: Head and neck cancer
     Dosage: UNK UNK, UNKNOWN
     Route: 041
  2. ERBITUX [Suspect]
     Active Substance: CETUXIMAB
     Indication: Squamous cell carcinoma of the oral cavity
  3. ERBITUX [Suspect]
     Active Substance: CETUXIMAB
     Indication: Gingival cancer
  4. PACLITAXEL [Suspect]
     Active Substance: PACLITAXEL
     Indication: Head and neck cancer
     Dosage: UNK UNK, UNKNOWN
     Route: 065
  5. PACLITAXEL [Suspect]
     Active Substance: PACLITAXEL
     Indication: Squamous cell carcinoma of the oral cavity
  6. PACLITAXEL [Suspect]
     Active Substance: PACLITAXEL
     Indication: Gingival cancer
  7. CARBOPLATIN [Suspect]
     Active Substance: CARBOPLATIN
     Indication: Head and neck cancer
     Dosage: UNK UNK, UNKNOWN
     Route: 065
  8. CARBOPLATIN [Suspect]
     Active Substance: CARBOPLATIN
     Indication: Squamous cell carcinoma of the oral cavity
  9. CARBOPLATIN [Suspect]
     Active Substance: CARBOPLATIN
     Indication: Gingival cancer

REACTIONS (2)
  - Myelodysplastic syndrome [Unknown]
  - Pancytopenia [Unknown]
